FAERS Safety Report 12769696 (Version 1)
Quarter: 2016Q3

REPORT INFORMATION
  Report Type: Spontaneous
  Country: US (occurrence: US)
  Receive Date: 20160922
  Receipt Date: 20160922
  Transmission Date: 20161109
  Serious: No
  Sender: FDA-Public Use
  Company Number: US-TAKEDA-2016TUS016389

PATIENT
  Age: 80 Year
  Sex: Female

DRUGS (2)
  1. COLCHICINE. [Suspect]
     Active Substance: COLCHICINE
     Indication: CRYSTAL ARTHROPATHY
     Dosage: 0.6 MG, QD
     Route: 065
     Dates: start: 20160802
  2. PENTOXIFYLLINE. [Suspect]
     Active Substance: PENTOXIFYLLINE
     Indication: THERAPEUTIC PROCEDURE
     Dosage: UNK
     Route: 065
     Dates: start: 20160802

REACTIONS (2)
  - Skin discolouration [Not Recovered/Not Resolved]
  - Genital lesion [Not Recovered/Not Resolved]
